FAERS Safety Report 6233195-8 (Version None)
Quarter: 2009Q2

REPORT INFORMATION
  Report Type: 
  Country: None (occurrence: None)
  Receive Date: 20090617
  Receipt Date: 20090610
  Transmission Date: 20091009
  Serious: Yes (Hospitalization)
  Sender: FDA-Public Use
  Company Number: US-GILEAD-2009-0022508

PATIENT
  Sex: Female
  Weight: 87.168 kg

DRUGS (12)
  1. LETAIRIS [Suspect]
     Indication: PULMONARY ARTERIAL HYPERTENSION
     Route: 048
     Dates: start: 20090523
  2. CARDIZEM CD [Concomitant]
  3. DIOVAN [Concomitant]
  4. FUROSEMIDE [Concomitant]
  5. SINGULAIR [Concomitant]
  6. GLUCOPHAGE [Concomitant]
  7. NEXIUM [Concomitant]
  8. TEMAZEPAM [Concomitant]
  9. OXYBUTYNIN [Concomitant]
  10. PREMARIN [Concomitant]
  11. OCUVITE LUTEIN [Concomitant]
  12. MAGNESIUM OXIDE [Concomitant]

REACTIONS (1)
  - SICK SINUS SYNDROME [None]
